FAERS Safety Report 4681143-4 (Version None)
Quarter: 2005Q2

REPORT INFORMATION
  Report Type: 
  Country: None (occurrence: None)
  Receive Date: 20050602
  Receipt Date: 20050523
  Transmission Date: 20051028
  Serious: Yes (Life-Threatening, Hospitalization)
  Sender: FDA-Public Use
  Company Number: GXKR2005GB01106

PATIENT
  Age: 67 Year
  Sex: Female

DRUGS (4)
  1. ENALAPRIL (NGX) (ENALAPRIL MALEATE) [Suspect]
     Indication: ANGIOPATHY
  2. BISOPROLOL (NGX) (BISOPROLOL) [Suspect]
     Indication: ANGIOPATHY
  3. BUMETANIDE [Suspect]
     Indication: ANGIOPATHY
  4. ISOSORBIDE MONONITRATE (ISOSRBIDE MONONITRATE) [Concomitant]

REACTIONS (12)
  - BLOOD BICARBONATE DECREASED [None]
  - BLOOD PRESSURE IMMEASURABLE [None]
  - BLOOD PRESSURE SYSTOLIC DECREASED [None]
  - BRADYCARDIA [None]
  - DEPRESSED LEVEL OF CONSCIOUSNESS [None]
  - DIALYSIS [None]
  - DIARRHOEA [None]
  - DRUG INTERACTION [None]
  - ELECTROCARDIOGRAM QRS COMPLEX PROLONGED [None]
  - HYPERKALAEMIA [None]
  - RENAL FAILURE ACUTE [None]
  - SINOATRIAL BLOCK [None]
